FAERS Safety Report 8391330-X (Version None)
Quarter: 2012Q2

REPORT INFORMATION
  Report Type: 
  Country: None (occurrence: None)
  Receive Date: 20120529
  Receipt Date: 20120515
  Transmission Date: 20120825
  Serious: Yes (Other)
  Sender: FDA-Public Use
  Company Number: US-JNJFOC-20120313055

PATIENT
  Sex: Male

DRUGS (5)
  1. INVEGA SUSTENNA [Suspect]
     Indication: PSYCHOTIC DISORDER
     Route: 030
  2. KLONOPIN [Suspect]
     Indication: ANXIETY
     Route: 065
  3. INVEGA SUSTENNA [Suspect]
     Route: 030
     Dates: start: 20120217
  4. KLONOPIN [Suspect]
     Route: 065
     Dates: start: 20110801, end: 20120201
  5. COGENTIN [Suspect]
     Indication: PRODUCT USED FOR UNKNOWN INDICATION
     Route: 065

REACTIONS (6)
  - COGNITIVE DISORDER [None]
  - ABNORMAL BEHAVIOUR [None]
  - GAIT DISTURBANCE [None]
  - DISORIENTATION [None]
  - ANXIETY [None]
  - CONFUSIONAL STATE [None]
